FAERS Safety Report 23713243 (Version 6)
Quarter: 2024Q3

REPORT INFORMATION
  Report Type: Spontaneous
  Country: RU (occurrence: None)
  Receive Date: 20240405
  Receipt Date: 20240912
  Transmission Date: 20241016
  Serious: Yes (Hospitalization, Other)
  Sender: ASTRAZENECA
  Company Number: 2024A080997

PATIENT
  Sex: Female

DRUGS (4)
  1. KOSELUGO [Suspect]
     Active Substance: SELUMETINIB
     Indication: Neurofibroma
     Route: 048
     Dates: start: 20230426
  2. KOSELUGO [Suspect]
     Active Substance: SELUMETINIB
     Indication: Neurofibromatosis
     Route: 048
     Dates: start: 20230426
  3. ANGIOVIT [Concomitant]
     Dosage: 1 TABLET TWO TIMES A DAY
  4. TAXIFOLIN, (+/-)- [Concomitant]
     Active Substance: TAXIFOLIN, (+/-)-
     Dosage: 1 TABLET ONCE EVERY DAY

REACTIONS (7)
  - Paronychia [Not Recovered/Not Resolved]
  - Erysipelas [Recovering/Resolving]
  - Pyrexia [Recovered/Resolved]
  - Headache [Unknown]
  - Pruritus [Unknown]
  - Leukocytosis [Unknown]
  - Oedema [Not Recovered/Not Resolved]

NARRATIVE: CASE EVENT DATE: 20240330
